FAERS Safety Report 11727533 (Version 1)
Quarter: 2015Q4

REPORT INFORMATION
  Report Type: Spontaneous
  Country: US (occurrence: US)
  Receive Date: 20151112
  Receipt Date: 20151112
  Transmission Date: 20160304
  Serious: Yes (Hospitalization)
  Sender: FDA-Public Use
  Company Number: US-ENDO PHARMACEUTICALS INC.-2015-003837

PATIENT
  Age: 24 Year
  Sex: Male
  Weight: 77.18 kg

DRUGS (1)
  1. XIAFLEX [Suspect]
     Active Substance: COLLAGENASE CLOSTRIDIUM HISTOLYTICUM
     Indication: PEYRONIE^S DISEASE
     Dates: start: 20140909, end: 20140909

REACTIONS (2)
  - Fracture of penis [Unknown]
  - Corpora cavernosa surgery [Unknown]

NARRATIVE: CASE EVENT DATE: 201409
